FAERS Safety Report 24705734 (Version 1)
Quarter: 2024Q4

REPORT INFORMATION
  Report Type: Spontaneous
  Country: US (occurrence: None)
  Receive Date: 20241205
  Receipt Date: 20241205
  Transmission Date: 20250114
  Serious: Yes (Life-Threatening, Disabling, Other)
  Sender: Public
  Company Number: None

PATIENT
  Age: 67 Year
  Sex: Female
  Weight: 53.1 kg

DRUGS (10)
  1. KEYTRUDA [Suspect]
     Active Substance: PEMBROLIZUMAB
     Indication: Triple negative breast cancer
     Dosage: ONCE A WEEK INTRAVENOUS
     Route: 042
     Dates: start: 20221001, end: 20231101
  2. PREDNISONE [Concomitant]
     Active Substance: PREDNISONE
  3. MULTI-VITAMIN [Concomitant]
     Active Substance: .ALPHA.-TOCOPHEROL ACETATE, DL-\ASCORBIC ACID\CYANOCOBALAMIN\FLUORIDE ION\FOLIC ACID\NIACIN\PYRIDOXI
  4. CALCIUM\MAGNESIUM [Concomitant]
     Active Substance: CALCIUM\MAGNESIUM
  5. VITAMIN D [Concomitant]
     Active Substance: VITAMIN D NOS
  6. MK2 [Concomitant]
  7. ALPHA LIPOIC ACID [Concomitant]
     Active Substance: .ALPHA.-LIPOIC ACID
  8. ZINC [Concomitant]
     Active Substance: ZINC
  9. VITAMIN C [Concomitant]
     Active Substance: ASCORBIC ACID
  10. PROBIOTICS NOS [Concomitant]
     Active Substance: PROBIOTICS NOS

REACTIONS (3)
  - Pulmonary embolism [None]
  - Pneumonia [None]
  - Rash pruritic [None]

NARRATIVE: CASE EVENT DATE: 20240316
